FAERS Safety Report 24674126 (Version 1)
Quarter: 2024Q4

REPORT INFORMATION
  Report Type: Report from Study
  Country: FR (occurrence: FR)
  Receive Date: 20241128
  Receipt Date: 20241128
  Transmission Date: 20250114
  Serious: Yes (Other)
  Sender: ABBVIE
  Company Number: US-ABBVIE-6022173

PATIENT
  Age: 55 Year
  Sex: Female

DRUGS (1)
  1. BOTOX [Suspect]
     Active Substance: ONABOTULINUMTOXINA
     Indication: Muscle spasticity
     Dosage: TIME INTERVAL: AS NECESSARY: 4 SINCE START
     Route: 065
     Dates: start: 202203, end: 202203

REACTIONS (4)
  - Multiple sclerosis [Unknown]
  - Pain [Unknown]
  - Muscle spasticity [Unknown]
  - Impaired work ability [Unknown]

NARRATIVE: CASE EVENT DATE: 20220301
